FAERS Safety Report 22352965 (Version 1)
Quarter: 2023Q2

REPORT INFORMATION
  Report Type: Spontaneous
  Country: FR (occurrence: FR)
  Receive Date: 20230523
  Receipt Date: 20230523
  Transmission Date: 20230721
  Serious: Yes (Hospitalization, Other)
  Sender: FDA-Public Use
  Company Number: FR-AUROBINDO-AUR-APL-2019-042482

PATIENT
  Age: 64 Year
  Sex: Female

DRUGS (3)
  1. DICLOFENAC [Suspect]
     Active Substance: DICLOFENAC
     Indication: Tendonitis
     Dosage: 1 DOSAGE FORM, ONCE A DAY (1 TO 2 APPLICATIONS PER DAY)
     Route: 003
     Dates: start: 20190519
  2. METRONIDAZOLE\SPIRAMYCIN [Suspect]
     Active Substance: METRONIDAZOLE\SPIRAMYCIN
     Indication: Oral infection
     Dosage: 2 DF, QD, 1.5 M.U.I./250 MG
     Route: 048
     Dates: start: 20190507
  3. DOLIPRANE [Suspect]
     Active Substance: ACETAMINOPHEN
     Indication: Pain
     Dosage: 1 GRAM, AS NECESSARY
     Route: 048
     Dates: start: 20190507

REACTIONS (2)
  - Agranulocytosis [Recovered/Resolved]
  - Anaemia [Recovered/Resolved]

NARRATIVE: CASE EVENT DATE: 20190529
